FAERS Safety Report 10129946 (Version 1)
Quarter: 2014Q2

REPORT INFORMATION
  Report Type: Spontaneous
  Country: US (occurrence: US)
  Receive Date: 20140428
  Receipt Date: 20140428
  Transmission Date: 20141212
  Serious: No
  Sender: FDA-Public Use
  Company Number: US-009507513-1404USA013506

PATIENT
  Sex: Male

DRUGS (2)
  1. CLARITIN ORAL SOLUTION [Suspect]
     Indication: PRODUCT USED FOR UNKNOWN INDICATION
     Dosage: UNK UNK, ONCE
     Route: 048
     Dates: start: 20140410
  2. CLARITIN ORAL SOLUTION [Suspect]
     Dosage: UNK, ONCE
     Route: 048
     Dates: start: 20140411

REACTIONS (1)
  - Inappropriate schedule of drug administration [Unknown]
